FAERS Safety Report 25087447 (Version 1)
Quarter: 2025Q1

REPORT INFORMATION
  Report Type: Spontaneous
  Country: CN (occurrence: CN)
  Receive Date: 20250318
  Receipt Date: 20250318
  Transmission Date: 20250408
  Serious: Yes (Other)
  Sender: NOVO NORDISK
  Company Number: None

PATIENT
  Age: 28 Year
  Sex: Female
  Weight: 60 kg

DRUGS (2)
  1. OZEMPIC [Suspect]
     Active Substance: SEMAGLUTIDE
     Dosage: 0.75 MG, QW(0.75MG,ONCE A WEEK)
     Route: 058
     Dates: start: 20240815, end: 20240815
  2. OZEMPIC [Suspect]
     Active Substance: SEMAGLUTIDE
     Indication: Weight increased
     Route: 058
     Dates: start: 20240115, end: 202408

REACTIONS (1)
  - Cholecystitis chronic [Unknown]

NARRATIVE: CASE EVENT DATE: 20250221
